FAERS Safety Report 4940460-0 (Version None)
Quarter: 2006Q1

REPORT INFORMATION
  Report Type: 
  Country: None (occurrence: None)
  Receive Date: 20060131
  Receipt Date: 20051221
  Transmission Date: 20060701
  Serious: Yes (Other)
  Sender: FDA-Public Use
  Company Number: 200520735US

PATIENT

DRUGS (1)
  1. KETEK [Suspect]

REACTIONS (1)
  - HEPATITIS [None]
